FAERS Safety Report 6244464-X (Version None)
Quarter: 2009Q2

REPORT INFORMATION
  Report Type: 
  Country: None (occurrence: None)
  Receive Date: 20090625
  Receipt Date: 20090402
  Transmission Date: 20091009
  Serious: Yes (Life-Threatening, Hospitalization, Other)
  Sender: FDA-Public Use
  Company Number: TR-ELI_LILLY_AND_COMPANY-TR200906002952

PATIENT
  Age: 60 Year
  Sex: Female

DRUGS (6)
  1. HUMULIN 70/30 [Suspect]
     Indication: DIABETES MELLITUS
     Dosage: 50 U, EACH MORNING
     Route: 058
  2. HUMULIN 70/30 [Suspect]
     Dosage: 35 U, EACH EVENING
     Route: 058
  3. TOPROL-XL [Concomitant]
     Dosage: UNK, 2/D
     Route: 065
  4. METEOSPASMYL /02143701/ [Concomitant]
     Dosage: UNK, UNKNOWN
     Route: 065
  5. GAVISCON [Concomitant]
     Dosage: UNK, UNKNOWN
     Route: 065
  6. LANSOR [Concomitant]
     Indication: GASTRIC DISORDER
     Dosage: UNK, 2/D
     Route: 065

REACTIONS (2)
  - BLOOD GLUCOSE INCREASED [None]
  - DIABETIC COMA [None]
